FAERS Safety Report 5290415-4 (Version None)
Quarter: 2007Q2

REPORT INFORMATION
  Report Type: 
  Country: None (occurrence: None)
  Receive Date: 20070402
  Receipt Date: 20070326
  Transmission Date: 20071010
  Serious: Yes (Hospitalization)
  Sender: FDA-Public Use
  Company Number: E2020-01029-SPO-JP

PATIENT
  Sex: Female
  Weight: 35 kg

DRUGS (5)
  1. ARICEPT [Suspect]
     Indication: DEMENTIA ALZHEIMER'S TYPE
     Dosage: 5 MG, 1 IN 1 D, ORAL
     Route: 048
     Dates: start: 20061110, end: 20070213
  2. NORVASC [Concomitant]
  3. METHYCOBAL (MECOBALAMIN) [Concomitant]
  4. DOXAZOSIN MESYLATE [Concomitant]
  5. OHNES (^STOMACHICS AND DIGESTIVES^) [Concomitant]

REACTIONS (2)
  - DYSKINESIA [None]
  - GAIT DISTURBANCE [None]
